FAERS Safety Report 4325084-0 (Version None)
Quarter: 2004Q1

REPORT INFORMATION
  Report Type: 
  Country: None (occurrence: None)
  Receive Date: 20040323
  Receipt Date: 20040315
  Transmission Date: 20041129
  Serious: Yes (Death, Life-Threatening, Hospitalization)
  Sender: FDA-Public Use
  Company Number: 2004201210DE

PATIENT
  Age: 61 Year
  Sex: Male

DRUGS (12)
  1. ZYVOXID 600MG (LINEZOLID) TABLET [Suspect]
     Indication: STAPHYLOCOCCAL INFECTION
     Dosage: 1200 MG, DAILY, ORAL
     Route: 048
     Dates: start: 20040211, end: 20040224
  2. PANTOZOL (PANTOPRAZOLE SODIUM) [Concomitant]
  3. BIFITERAL [Concomitant]
  4. ESPUMISAN [Concomitant]
  5. VITAMINE C [Concomitant]
  6. PREDNISOLONE [Concomitant]
  7. FOLIC ACID [Concomitant]
  8. SINUPRET (PRIMULA FLOWERS, SAMBUCUS FLOWERS, RUMICIS ASETOSA, VERBENA [Concomitant]
  9. DURAGESIC [Concomitant]
  10. ENOXAPARIN SODIUM [Concomitant]
  11. FLOXAL EYEDROPS (OFLOXACIN) [Concomitant]
  12. PANTHENOL (PANTHENOL) [Concomitant]

REACTIONS (2)
  - HAEMODIALYSIS [None]
  - RENAL FAILURE ACUTE [None]
